FAERS Safety Report 10677590 (Version 3)
Quarter: 2015Q1

REPORT INFORMATION
  Report Type: Spontaneous
  Country: IT (occurrence: IT)
  Receive Date: 20141228
  Receipt Date: 20150326
  Transmission Date: 20150720
  Serious: Yes (Death, Life-Threatening)
  Sender: FDA-Public Use
  Company Number: IT-ROCHE-1514643

PATIENT
  Age: 55 Year
  Sex: Male

DRUGS (4)
  1. ENDOXAN BAXTER [Suspect]
     Active Substance: CYCLOPHOSPHAMIDE
     Indication: PRODUCT USED FOR UNKNOWN INDICATION
     Dosage: 200 MG POWDER FOR SOLUTION FOR INJECTION
     Route: 042
     Dates: start: 19980101, end: 20050101
  2. CELLCEPT [Suspect]
     Active Substance: MYCOPHENOLATE MOFETIL\MYCOPHENOLATE MOFETIL HYDROCHLORIDE
     Indication: PRODUCT USED FOR UNKNOWN INDICATION
     Dosage: 50 500 MG TABLETS
     Route: 048
     Dates: start: 20050201, end: 20070701
  3. AZATIOPRINA [Suspect]
     Active Substance: AZATHIOPRINE
     Indication: PRODUCT USED FOR UNKNOWN INDICATION
     Dosage: 100 50 MG FILM-COATED TABLETS IN PP/AL
     Route: 048
     Dates: start: 20030101, end: 20080801
  4. DELTACORTENE [Suspect]
     Active Substance: PREDNISONE
     Indication: SYSTEMIC LUPUS ERYTHEMATOSUS
     Dosage: 25 MG TABLETS 10 TABLETS
     Route: 048
     Dates: start: 19980201, end: 20070701

REACTIONS (1)
  - Cholangiocarcinoma [Fatal]

NARRATIVE: CASE EVENT DATE: 20070701
